FAERS Safety Report 12292916 (Version 1)
Quarter: 2016Q2

REPORT INFORMATION
  Report Type: Spontaneous
  Country: US (occurrence: US)
  Receive Date: 20160421
  Receipt Date: 20160421
  Transmission Date: 20160815
  Serious: No
  Sender: FDA-Public Use
  Company Number: US-ALLERGAN-1525188US

PATIENT
  Age: 68 Year
  Sex: Female
  Weight: 72.56 kg

DRUGS (2)
  1. LUMIGAN [Concomitant]
     Active Substance: BIMATOPROST
     Indication: GLAUCOMA
     Dosage: UNK
     Route: 047
     Dates: start: 201412
  2. TIMOLOL MALEATE. [Suspect]
     Active Substance: TIMOLOL MALEATE
     Indication: GLAUCOMA
     Dosage: 2 GTT, BID
     Route: 047
     Dates: start: 201509, end: 20151001

REACTIONS (6)
  - Dry throat [Unknown]
  - Heart rate increased [Not Recovered/Not Resolved]
  - Nasal dryness [Unknown]
  - Palpitations [Not Recovered/Not Resolved]
  - Ventricular extrasystoles [Unknown]
  - Dry mouth [Unknown]

NARRATIVE: CASE EVENT DATE: 201509
